FAERS Safety Report 24752647 (Version 2)
Quarter: 2025Q1

REPORT INFORMATION
  Report Type: Other
  Country: US (occurrence: US)
  Receive Date: 20241219
  Receipt Date: 20250124
  Transmission Date: 20250409
  Serious: No
  Sender: TRAVERE THERAPEUTICS
  Company Number: US-TRAVERE-2024TVT01247

PATIENT
  Age: 28 Year
  Sex: Male

DRUGS (3)
  1. FILSPARI [Suspect]
     Active Substance: SPARSENTAN
     Indication: IgA nephropathy
     Route: 048
     Dates: start: 202410
  2. FILSPARI [Suspect]
     Active Substance: SPARSENTAN
     Route: 048
  3. ZYMFENTRA [Concomitant]
     Active Substance: INFLIXIMAB-DYYB

REACTIONS (4)
  - Abdominal pain upper [Unknown]
  - Lethargy [Unknown]
  - Dehydration [Unknown]
  - Hypotension [Unknown]

NARRATIVE: CASE EVENT DATE: 20241201
